FAERS Safety Report 6992516-9 (Version None)
Quarter: 2010Q3

REPORT INFORMATION
  Report Type: 
  Country: None (occurrence: None)
  Receive Date: 20100915
  Receipt Date: 20100823
  Transmission Date: 20110219
  Serious: Yes (Death, Hospitalization, Other)
  Sender: FDA-Public Use
  Company Number: BVT-000481

PATIENT
  Age: 4 Year
  Sex: Female
  Weight: 13 kg

DRUGS (2)
  1. KINERET [Suspect]
     Indication: JUVENILE ARTHRITIS
     Dosage: (0.17 ML SUBCUTANEOUS)
     Route: 058
     Dates: start: 20090609, end: 20091112
  2. SOLUPRED [Concomitant]

REACTIONS (5)
  - ASTHENIA [None]
  - INFLUENZA LIKE ILLNESS [None]
  - MYOCARDITIS [None]
  - RASH [None]
  - TOXIC SKIN ERUPTION [None]
